FAERS Safety Report 8372635-5 (Version None)
Quarter: 2012Q2

REPORT INFORMATION
  Report Type: 
  Country: None (occurrence: None)
  Receive Date: 20120521
  Receipt Date: 20120515
  Transmission Date: 20120825
  Serious: Yes (Disabling, Other)
  Sender: FDA-Public Use
  Company Number: PHHY2009AU31108

PATIENT
  Sex: Male

DRUGS (13)
  1. VITAMIN D [Concomitant]
  2. LIPITOR [Concomitant]
     Indication: HYPERCHOLESTEROLAEMIA
     Dosage: 10 MG, QD
     Route: 048
  3. FISH OIL [Concomitant]
  4. SELENIUM [Concomitant]
  5. CUCUMIS MELO JUICE POWDER [Concomitant]
  6. VASCARDOL [Concomitant]
  7. COQ10 [Concomitant]
  8. CLOPIDOGREL BISULFATE [Concomitant]
     Dosage: 75 MG, QD
     Route: 048
  9. VITAMIN E [Concomitant]
  10. LIPOIC ACID [Concomitant]
  11. GLEEVEC [Suspect]
     Indication: CHRONIC MYELOID LEUKAEMIA
     Dosage: 400 MG, UNK
     Route: 048
     Dates: start: 20070101, end: 20120501
  12. CHONDROITIN SULFATE [Concomitant]
  13. PROXAN [Concomitant]

REACTIONS (13)
  - CONJUNCTIVAL DISORDER [None]
  - NAUSEA [None]
  - FLUID RETENTION [None]
  - PAIN IN EXTREMITY [None]
  - PERIORBITAL OEDEMA [None]
  - ARTHRALGIA [None]
  - OEDEMA [None]
  - INTRAOCULAR PRESSURE INCREASED [None]
  - DRY SKIN [None]
  - MUSCLE ATROPHY [None]
  - MUSCLE SPASMS [None]
  - HAIR TEXTURE ABNORMAL [None]
  - MYALGIA [None]
